FAERS Safety Report 5446083-1 (Version None)
Quarter: 2007Q3

REPORT INFORMATION
  Report Type: 
  Country: None (occurrence: None)
  Receive Date: 20070904
  Receipt Date: 20070823
  Transmission Date: 20080115
  Serious: Yes (Death)
  Sender: FDA-Public Use
  Company Number: CIP07001658

PATIENT
  Age: 72 Year
  Sex: Male

DRUGS (3)
  1. DANTRIUM [Suspect]
     Indication: NEUROLEPTIC MALIGNANT SYNDROME
     Dosage: 40 MG, 1 ONLY, IV DRIP; 60 MG, 1 ONLY, IV DRIP; 60 MG, 1 ONLY , IV DRIP
     Route: 041
     Dates: start: 20070821, end: 20070821
  2. DANTRIUM [Suspect]
     Indication: NEUROLEPTIC MALIGNANT SYNDROME
     Dosage: 40 MG, 1 ONLY, IV DRIP; 60 MG, 1 ONLY, IV DRIP; 60 MG, 1 ONLY , IV DRIP
     Route: 041
     Dates: start: 20070821, end: 20070821
  3. DANTRIUM [Suspect]
     Indication: NEUROLEPTIC MALIGNANT SYNDROME
     Dosage: 40 MG, 1 ONLY, IV DRIP; 60 MG, 1 ONLY, IV DRIP; 60 MG, 1 ONLY , IV DRIP
     Route: 041
     Dates: start: 20070821, end: 20070821

REACTIONS (1)
  - CARDIO-RESPIRATORY ARREST [None]
